FAERS Safety Report 22252743 (Version 3)
Quarter: 2023Q2

REPORT INFORMATION
  Report Type: Report from Study
  Country: US (occurrence: US)
  Receive Date: 20230426
  Receipt Date: 20230503
  Transmission Date: 20230722
  Serious: No
  Sender: FDA-Public Use
  Company Number: US-BIOVITRUM-2023-US-009688

PATIENT
  Age: 14 Year
  Sex: Male

DRUGS (2)
  1. KINERET [Suspect]
     Active Substance: ANAKINRA
     Indication: Encephalitis
     Dosage: 100 MG ,DAILY
  2. KINERET [Suspect]
     Active Substance: ANAKINRA
     Indication: Encephalomyelitis
     Dosage: 100 MG ,DAILY
     Route: 058
     Dates: start: 20230323

REACTIONS (4)
  - Intentional product misuse [Unknown]
  - Injection related reaction [Unknown]
  - Injection site erythema [Recovered/Resolved]
  - Needle issue [Unknown]

NARRATIVE: CASE EVENT DATE: 20230323
